FAERS Safety Report 9972572 (Version 1)
Quarter: 2014Q1

REPORT INFORMATION
  Report Type: Report from Study
  Country: US (occurrence: US)
  Receive Date: 20140306
  Receipt Date: 20140306
  Transmission Date: 20141002
  Serious: No
  Sender: FDA-Public Use
  Company Number: US-ABBVIE-13P-163-1154294-00

PATIENT
  Age: 64 Year
  Sex: Female

DRUGS (29)
  1. HUMIRA [Suspect]
     Indication: CROHN^S DISEASE
     Dates: start: 20130901, end: 20130901
  2. HUMIRA [Suspect]
     Dates: start: 20130915, end: 20130915
  3. HUMIRA [Suspect]
     Dates: start: 20130929
  4. OXYCODONE [Concomitant]
     Indication: PAIN
     Dosage: 3-4 DAILY
  5. HYDRALAZINE [Concomitant]
     Indication: HEART RATE DECREASED
  6. PAXIL [Concomitant]
     Indication: ANXIETY
  7. PAXIL [Concomitant]
     Indication: NEUROPATHY PERIPHERAL
  8. TEMAZEPAM [Concomitant]
     Indication: ANXIETY
  9. TEMAZEPAM [Concomitant]
     Indication: INSOMNIA
  10. HYDRATION SALTS [Concomitant]
     Indication: PRODUCT USED FOR UNKNOWN INDICATION
  11. MULTIVITAMIN [Concomitant]
     Indication: PRODUCT USED FOR UNKNOWN INDICATION
     Dosage: 1 TBSP DAILY
  12. AL ACID [Concomitant]
     Indication: PRODUCT USED FOR UNKNOWN INDICATION
     Dosage: 400 MG DAILY
  13. ACETYL [Concomitant]
     Indication: PRODUCT USED FOR UNKNOWN INDICATION
     Dosage: 2000 MG DAILY
  14. LYSINE [Concomitant]
     Indication: PRODUCT USED FOR UNKNOWN INDICATION
     Dosage: 1000 MG DAILY
  15. B-12 [Concomitant]
     Indication: PRODUCT USED FOR UNKNOWN INDICATION
     Dosage: 1 ML LIQUID DAILY
  16. FISH OIL [Concomitant]
     Indication: PRODUCT USED FOR UNKNOWN INDICATION
     Dosage: 2 TBSP DAILY
  17. GLUTAMINE [Concomitant]
     Indication: PRODUCT USED FOR UNKNOWN INDICATION
     Dosage: 1000 MG DAILY
  18. IRON [Concomitant]
     Indication: PRODUCT USED FOR UNKNOWN INDICATION
     Dosage: 50 MG DAILY
  19. MAGNESIUM [Concomitant]
     Indication: PRODUCT USED FOR UNKNOWN INDICATION
     Dosage: 1200 MG DAILY
  20. VITAMIN A [Concomitant]
     Indication: PRODUCT USED FOR UNKNOWN INDICATION
     Dosage: 20,000 IU DAILY
  21. VITAMIN C [Concomitant]
     Indication: PRODUCT USED FOR UNKNOWN INDICATION
     Dosage: 1000 MG DAILY
  22. D3 [Concomitant]
     Indication: PRODUCT USED FOR UNKNOWN INDICATION
     Dosage: 100,000 IU DAILY
  23. VITAMIN K [Concomitant]
     Indication: PRODUCT USED FOR UNKNOWN INDICATION
     Dosage: 100 MCG DAILY
  24. B-12 [Concomitant]
     Indication: PRODUCT USED FOR UNKNOWN INDICATION
     Dosage: SHOT NOW AND THEN
  25. METHADONE [Concomitant]
     Indication: MYALGIA
     Dosage: 30 MG DAILY, WEANING
  26. METHADONE [Concomitant]
     Dosage: 20 MG DAILY, WEANING
  27. METHADONE [Concomitant]
     Dosage: 10 MG DAILY
  28. METHADONE [Concomitant]
     Dosage: 15 MG DAILY
     Dates: start: 20130917
  29. METHADONE [Concomitant]
     Dosage: 20 MG DAILY

REACTIONS (2)
  - Myalgia [Not Recovered/Not Resolved]
  - Injection site pain [Recovered/Resolved]
